FAERS Safety Report 14905278 (Version 1)
Quarter: 2018Q2

REPORT INFORMATION
  Report Type: Spontaneous
  Country: US (occurrence: US)
  Receive Date: 20180517
  Receipt Date: 20180517
  Transmission Date: 20180711
  Serious: No
  Sender: FDA-Public Use
  Company Number: US-SA-2017SA242086

PATIENT
  Age: 75 Year
  Sex: Male
  Weight: 91.17 kg

DRUGS (23)
  1. LANTUS SOLOSTAR [Suspect]
     Active Substance: INSULIN GLARGINE
     Indication: TYPE 2 DIABETES MELLITUS
     Dosage: 16-24 UNITS
     Route: 058
     Dates: start: 2013
  2. LANTUS SOLOSTAR [Suspect]
     Active Substance: INSULIN GLARGINE
     Indication: TYPE 2 DIABETES MELLITUS
     Dosage: 16-24 UNITS
     Route: 058
     Dates: start: 2013
  3. HYDROCORTISONE. [Concomitant]
     Active Substance: HYDROCORTISONE
     Dosage: STRENGTH: 2.5%
     Route: 061
  4. NOVOLOG [Concomitant]
     Active Substance: INSULIN ASPART
     Dosage: DOSE: 5-10 UNITS
     Route: 065
  5. VITAMIN B12 [Concomitant]
     Active Substance: CYANOCOBALAMIN
     Dosage: STRENGTH: 250MCG
     Route: 065
  6. HYDROCHLOROTHIAZIDE/TRIAMTERENE [Concomitant]
     Dosage: STRENGTH: 25-37.5MG
     Route: 048
  7. NEURONTIN [Concomitant]
     Active Substance: GABAPENTIN
     Route: 048
  8. SOLOSTAR [Suspect]
     Active Substance: DEVICE
     Indication: TYPE 2 DIABETES MELLITUS
     Dates: start: 2013
  9. PRAVACHOL [Concomitant]
     Active Substance: PRAVASTATIN SODIUM
     Dosage: STRENGTH: 20MG
     Route: 048
  10. NORVASC [Concomitant]
     Active Substance: AMLODIPINE BESYLATE
     Route: 048
  11. FLONASE [Concomitant]
     Active Substance: FLUTICASONE PROPIONATE
     Dosage: 50 MCG/ACT? 1 SPRAY INTO EACH NOSTRIL 2 TIMES DAILY.
     Route: 045
  12. FLEXPEN [Concomitant]
     Active Substance: UNSPECIFIED INGREDIENT
  13. KLOR-CON [Concomitant]
     Active Substance: POTASSIUM CHLORIDE
     Route: 048
  14. SOLOSTAR [Suspect]
     Active Substance: DEVICE
     Indication: TYPE 2 DIABETES MELLITUS
     Dates: start: 2013
  15. REMERON [Concomitant]
     Active Substance: MIRTAZAPINE
     Dosage: STRENGTH: 15MG
     Route: 048
  16. COUMADIN [Concomitant]
     Active Substance: WARFARIN SODIUM
     Dosage: STRENGTH: 5MG
  17. PRILOSEC [Concomitant]
     Active Substance: OMEPRAZOLE MAGNESIUM
     Route: 048
  18. PEPCID [Concomitant]
     Active Substance: FAMOTIDINE
     Dosage: STRENGTH: 20MG
     Route: 048
  19. COUMADIN [Concomitant]
     Active Substance: WARFARIN SODIUM
     Dosage: STRENGTH: 10MG
     Route: 048
  20. COREG [Concomitant]
     Active Substance: CARVEDILOL
     Route: 048
  21. MAGNESIUM [Concomitant]
     Active Substance: MAGNESIUM
     Route: 048
  22. ATIVAN [Concomitant]
     Active Substance: LORAZEPAM
     Dosage: STRENGTH: 0.5MG
     Route: 065
  23. FOLVITE [Concomitant]
     Active Substance: FOLIC ACID
     Route: 048

REACTIONS (6)
  - Hypoglycaemia [Recovered/Resolved]
  - Blood glucose increased [Unknown]
  - Hyperhidrosis [Unknown]
  - Product use issue [Unknown]
  - Underdose [Unknown]
  - Tremor [Unknown]

NARRATIVE: CASE EVENT DATE: 2017
